FAERS Safety Report 9402440 (Version 1)
Quarter: 2013Q3

REPORT INFORMATION
  Report Type: Spontaneous
  Country: US (occurrence: US)
  Receive Date: 20130716
  Receipt Date: 20130716
  Transmission Date: 20140515
  Serious: Yes (Hospitalization)
  Sender: FDA-Public Use
  Company Number: US-PFIZER INC-2013203727

PATIENT
  Age: 57 Year
  Sex: Female

DRUGS (3)
  1. CARBOPLATIN [Suspect]
     Indication: HER-2 POSITIVE BREAST CANCER
     Dosage: UNK, EVERY 3 WEEKS AUC OF FIVE
     Route: 042
  2. DOCETAXEL [Suspect]
     Indication: HER-2 POSITIVE BREAST CANCER
     Dosage: 75 MG/M2, EVERY 3 WEEKS
     Route: 042
  3. TRASTUZUMAB [Suspect]
     Indication: HER-2 POSITIVE BREAST CANCER
     Dosage: 6 MG/KG, EVERY 3 WEEKS
     Route: 042

REACTIONS (2)
  - Thrombotic microangiopathy [Recovered/Resolved]
  - Renal failure acute [Recovering/Resolving]
